FAERS Safety Report 8811876 (Version 1)
Quarter: 2012Q4

REPORT INFORMATION
  Report Type: Spontaneous
  Country: US (occurrence: None)
  Receive Date: 20120926
  Receipt Date: 20120926
  Transmission Date: 20130627
  Serious: No
  Sender: FDA-Public Use
  Company Number: None

PATIENT
  Sex: Female
  Weight: 68.95 kg

DRUGS (1)
  1. ESTRADIOL [Suspect]
     Indication: SURGICAL MENOPAUSE
     Dosage: 0.025 mg 1 qwk ID
     Route: 023
     Dates: start: 20120723

REACTIONS (3)
  - Product adhesion issue [None]
  - Application site rash [None]
  - Application site pruritus [None]
